FAERS Safety Report 4496804-X (Version None)
Quarter: 2004Q4

REPORT INFORMATION
  Report Type: 
  Country: None (occurrence: None)
  Receive Date: 20041109
  Receipt Date: 20041102
  Transmission Date: 20050328
  Serious: Yes (Hospitalization)
  Sender: FDA-Public Use
  Company Number: US-JNJFOC-20041100989

PATIENT
  Age: 56 Year
  Sex: Female

DRUGS (7)
  1. DURAGESIC [Suspect]
     Route: 062
  2. REGLAN [Concomitant]
     Indication: NAUSEA
     Route: 049
  3. WARFARIN [Concomitant]
     Route: 049
  4. ALTACE [Concomitant]
     Route: 049
  5. NEURONTIN [Concomitant]
     Route: 049
  6. PEPCID AC [Concomitant]
     Indication: NAUSEA
     Route: 049
  7. PEPCID AC [Concomitant]
     Route: 049

REACTIONS (3)
  - DEHYDRATION [None]
  - NAUSEA [None]
  - VOMITING [None]
